FAERS Safety Report 4967546-9 (Version None)
Quarter: 2006Q2

REPORT INFORMATION
  Report Type: 
  Country: None (occurrence: None)
  Receive Date: 20060410
  Receipt Date: 20060328
  Transmission Date: 20061013
  Serious: Yes (Hospitalization)
  Sender: FDA-Public Use
  Company Number: JP-GLAXOSMITHKLINE-B0418617A

PATIENT
  Age: 76 Year
  Sex: Male
  Weight: 68 kg

DRUGS (13)
  1. SALMETEROL XINAFOATE + FLUTICASONE PROPIONATE [Suspect]
     Indication: CHRONIC OBSTRUCTIVE PULMONARY DISEASE
     Route: 055
     Dates: start: 20050830
  2. ALBUTEROL [Concomitant]
     Indication: CHRONIC OBSTRUCTIVE PULMONARY DISEASE
     Route: 055
     Dates: start: 20050830
  3. SPIRIVA [Concomitant]
     Indication: CHRONIC OBSTRUCTIVE PULMONARY DISEASE
     Dosage: 18MCG PER DAY
     Route: 055
     Dates: start: 20050307
  4. ASPIRIN [Concomitant]
     Indication: MYOCARDIAL INFARCTION
     Dosage: 100MG TWICE PER DAY
     Route: 048
     Dates: start: 20040913, end: 20060319
  5. MUCOSTA [Concomitant]
     Indication: GASTRIC ULCER
     Dosage: 100MG TWICE PER DAY
     Route: 048
     Dates: start: 20040913
  6. DILTIAZEM HCL [Concomitant]
     Indication: HYPERTENSION
     Dosage: 100MG TWICE PER DAY
     Route: 048
     Dates: start: 20040913
  7. SIGMART [Concomitant]
     Indication: MYOCARDIAL INFARCTION
     Dosage: 5MG THREE TIMES PER DAY
     Route: 048
     Dates: start: 20040913
  8. BLOPRESS [Concomitant]
     Indication: HYPERTENSION
     Dosage: 12MG PER DAY
     Route: 048
     Dates: start: 20040913
  9. AMLODIN [Concomitant]
     Indication: HYPERTENSION
     Dosage: 5MG PER DAY
     Route: 048
     Dates: start: 20040913
  10. ZANTAC [Concomitant]
     Indication: GASTRIC ULCER
     Dosage: 150MG PER DAY
     Route: 048
     Dates: start: 20040917
  11. MEVALOTIN [Concomitant]
     Indication: HYPERLIPIDAEMIA
     Dosage: 10MG PER DAY
     Route: 048
     Dates: start: 20040928
  12. ZYLORIC [Concomitant]
     Indication: HYPERURICAEMIA
     Dosage: 100MG PER DAY
     Route: 048
     Dates: start: 20050411
  13. ANPLAG [Concomitant]
     Indication: ARTERIOSCLEROSIS OBLITERANS
     Dosage: 100MG THREE TIMES PER DAY
     Route: 048
     Dates: start: 20060227, end: 20060319

REACTIONS (1)
  - ARTERIOSCLEROSIS OBLITERANS [None]
